FAERS Safety Report 9046166 (Version 1)
Quarter: 2013Q1

REPORT INFORMATION
  Report Type: Spontaneous
  Country: US (occurrence: US)
  Receive Date: 20130201
  Receipt Date: 20130201
  Transmission Date: 20140127
  Serious: Yes (Other)
  Sender: FDA-Public Use
  Company Number: PHEH2013US002602

PATIENT
  Sex: Female

DRUGS (1)
  1. ZELNORM [Suspect]
     Dosage: UNK UKN, UNK
     Dates: start: 2001

REACTIONS (8)
  - Gastric haemorrhage [Unknown]
  - Dyspepsia [Unknown]
  - Abdominal distension [Unknown]
  - Heart rate decreased [Unknown]
  - Blood pressure abnormal [Unknown]
  - Pain [Unknown]
  - Fibromyalgia [Unknown]
  - Pain in extremity [Unknown]
